FAERS Safety Report 12744742 (Version 1)
Quarter: 2016Q3

REPORT INFORMATION
  Report Type: Report from Study
  Country: ES (occurrence: ES)
  Receive Date: 20160915
  Receipt Date: 20160915
  Transmission Date: 20161109
  Serious: Yes (Other)
  Sender: FDA-Public Use
  Company Number: ES-BAXTER-2016BAX046322

PATIENT
  Age: 79 Year

DRUGS (9)
  1. FLUDARABINE [Suspect]
     Active Substance: FLUDARABINE PHOSPHATE
     Indication: CHRONIC LYMPHOCYTIC LEUKAEMIA
     Dosage: COMPLETE DOSE
     Route: 065
     Dates: start: 20111107, end: 20111110
  2. RITUXIMAB [Suspect]
     Active Substance: RITUXIMAB
     Indication: CHRONIC LYMPHOCYTIC LEUKAEMIA
     Dosage: COMPLETE DOSE
     Route: 042
     Dates: start: 20111107, end: 20111110
  3. FLUDARABINE [Suspect]
     Active Substance: FLUDARABINE PHOSPHATE
     Dosage: REDUCE DUE TO HEMATOLOGIC TOXICITY
     Route: 065
     Dates: start: 20120102, end: 20120104
  4. GENOXAL [Suspect]
     Active Substance: CYCLOPHOSPHAMIDE
     Dosage: REDUCE DUE TO HEMATOLOGIC TOXICITY
     Route: 065
     Dates: start: 20111205, end: 20111207
  5. RITUXIMAB [Suspect]
     Active Substance: RITUXIMAB
     Dosage: COMPLETE DOSE
     Route: 042
     Dates: start: 20120102, end: 20120104
  6. FLUDARABINE [Suspect]
     Active Substance: FLUDARABINE PHOSPHATE
     Dosage: REDUCE DUE TO HEMATOLOGIC TOXICITY
     Route: 065
     Dates: start: 20111205, end: 20111207
  7. GENOXAL [Suspect]
     Active Substance: CYCLOPHOSPHAMIDE
     Dosage: REDUCE DUE TO HEMATOLOGIC TOXICITY
     Route: 065
     Dates: start: 20120102, end: 20120104
  8. RITUXIMAB [Suspect]
     Active Substance: RITUXIMAB
     Dosage: COMPLETE DOSE
     Route: 042
     Dates: start: 20111205, end: 20111207
  9. GENOXAL [Suspect]
     Active Substance: CYCLOPHOSPHAMIDE
     Indication: CHRONIC LYMPHOCYTIC LEUKAEMIA
     Dosage: COMPLETE DOSE
     Route: 065
     Dates: start: 20111107, end: 20111110

REACTIONS (5)
  - Hot flush [Recovered/Resolved]
  - Haematotoxicity [Unknown]
  - Anaemia [Recovered/Resolved]
  - Rash maculo-papular [Recovered/Resolved]
  - Localised oedema [Recovered/Resolved]

NARRATIVE: CASE EVENT DATE: 2011
